FAERS Safety Report 14683170 (Version 2)
Quarter: 2018Q2

REPORT INFORMATION
  Report Type: Spontaneous
  Country: IT (occurrence: IT)
  Receive Date: 20180327
  Receipt Date: 20180411
  Transmission Date: 20180711
  Serious: Yes (Hospitalization)
  Sender: FDA-Public Use
  Company Number: IT-ACCORD-065169

PATIENT
  Age: 82 Year
  Sex: Female

DRUGS (10)
  1. ALBUMIN HUMAN [Concomitant]
     Active Substance: ALBUMIN HUMAN
     Indication: PROTEIN DEFICIENCY
     Route: 042
  2. INDOMETACIN [Suspect]
     Active Substance: INDOMETHACIN
     Indication: ARTHRALGIA
  3. BUFLOMEDIL [Suspect]
     Active Substance: BUFLOMEDIL
     Indication: PERIPHERAL ARTERIAL OCCLUSIVE DISEASE
  4. TICLOPIDINE [Suspect]
     Active Substance: TICLOPIDINE
     Indication: PERIPHERAL ARTERIAL OCCLUSIVE DISEASE
  5. FUROSEMIDE. [Suspect]
     Active Substance: FUROSEMIDE
     Indication: PRODUCT USED FOR UNKNOWN INDICATION
     Route: 042
  6. HYDROCHLOROTHIAZIDE. [Suspect]
     Active Substance: HYDROCHLOROTHIAZIDE
     Indication: HYPERTENSION
  7. SPIRONOLACTONE. [Suspect]
     Active Substance: SPIRONOLACTONE
     Indication: DIURETIC THERAPY
     Route: 048
  8. AMINOACETIC ACID/ARGININE/HISTIDINE/ISOLEUCINE/LEUCINE/LYSINE/METHIONINE/PHENYLALANINE/THREONINE/TRY [Concomitant]
     Indication: PROTEIN DEFICIENCY
     Route: 042
  9. AMPICILLIN [Suspect]
     Active Substance: AMPICILLIN
     Indication: PNEUMONIA
  10. NORFLOXACIN/NORFLOXACIN HYDROCHLORIDE [Concomitant]
     Indication: ESCHERICHIA URINARY TRACT INFECTION

REACTIONS (6)
  - Oliguria [Unknown]
  - Tubulointerstitial nephritis [Unknown]
  - Oedema peripheral [Unknown]
  - Hypokalaemia [Unknown]
  - Drug hypersensitivity [Unknown]
  - Escherichia urinary tract infection [Unknown]

NARRATIVE: CASE EVENT DATE: 19880201
